FAERS Safety Report 8261386-3 (Version None)
Quarter: 2012Q2

REPORT INFORMATION
  Report Type: 
  Country: None (occurrence: None)
  Receive Date: 20120405
  Receipt Date: 20120330
  Transmission Date: 20120825
  Serious: Yes (Hospitalization, Other)
  Sender: FDA-Public Use
  Company Number: US-PFIZER INC-2012069063

PATIENT
  Sex: Female
  Weight: 92.971 kg

DRUGS (7)
  1. ATIVAN [Concomitant]
     Dosage: UNK
  2. GLUCOPHAGE [Concomitant]
     Dosage: UNK
  3. ZOLOFT [Concomitant]
     Dosage: UNK
  4. LISINOPRIL [Concomitant]
     Indication: HYPERTENSION
     Dosage: UNK
  5. ESTROGENS [Concomitant]
     Dosage: UNK
  6. LYRICA [Suspect]
     Indication: FIBROMYALGIA
     Dosage: 75 MG, 2X/DAY
     Route: 048
     Dates: start: 20120301, end: 20120302
  7. PRILOSEC [Concomitant]
     Dosage: UNK

REACTIONS (14)
  - SWOLLEN TONGUE [None]
  - LOSS OF CONSCIOUSNESS [None]
  - VISUAL FIELD DEFECT [None]
  - MUSCLE TWITCHING [None]
  - HYPOAESTHESIA [None]
  - LACK OF SPONTANEOUS SPEECH [None]
  - PAIN [None]
  - DIZZINESS [None]
  - DYSSTASIA [None]
  - MUSCLE SPASMS [None]
  - MUSCLE TIGHTNESS [None]
  - BLOOD PRESSURE INCREASED [None]
  - VISION BLURRED [None]
  - HEART RATE INCREASED [None]
